FAERS Safety Report 25080507 (Version 2)
Quarter: 2025Q4

REPORT INFORMATION
  Report Type: Spontaneous
  Country: US (occurrence: US)
  Receive Date: 20250315
  Receipt Date: 20251228
  Transmission Date: 20260117
  Serious: No
  Sender: SANOFI AVENTIS
  Company Number: US-SA-2025SA075250

PATIENT
  Age: 68 Year
  Sex: Male

DRUGS (2)
  1. DUPIXENT [Suspect]
     Active Substance: DUPILUMAB
     Indication: Dermatitis atopic
     Dosage: 300 MG, QOW
     Route: 058
     Dates: start: 202303
  2. BUDESONIDE [Suspect]
     Active Substance: BUDESONIDE
     Dosage: UNK

REACTIONS (3)
  - Rhinorrhoea [Unknown]
  - Cough [Unknown]
  - Dermatitis atopic [Recovered/Resolved]
